FAERS Safety Report 6234781-1 (Version None)
Quarter: 2009Q2

REPORT INFORMATION
  Report Type: 
  Country: None (occurrence: None)
  Receive Date: 20090618
  Receipt Date: 20090611
  Transmission Date: 20091009
  Serious: Yes (Other)
  Sender: FDA-Public Use
  Company Number: PHHY2009FR23161

PATIENT
  Sex: Female

DRUGS (3)
  1. EXFORGE [Suspect]
     Dosage: 160/5/DAY
     Dates: start: 20090428
  2. AMIODARONE [Concomitant]
  3. LEVOTHYROX [Concomitant]

REACTIONS (4)
  - FATIGUE [None]
  - HYPOTENSION [None]
  - SLEEP DISORDER [None]
  - TINNITUS [None]
